FAERS Safety Report 10358584 (Version 1)
Quarter: 2014Q3

REPORT INFORMATION
  Report Type: Report from Study
  Country: AR (occurrence: AR)
  Receive Date: 20140803
  Receipt Date: 20140803
  Transmission Date: 20150326
  Serious: Yes (Other)
  Sender: FDA-Public Use
  Company Number: PHHY2014AR094493

PATIENT
  Sex: Female

DRUGS (1)
  1. DIOVAN [Suspect]
     Active Substance: VALSARTAN
     Indication: HYPERTENSION
     Dosage: 0.5 DF (160 MG), DAILY
     Dates: start: 201310

REACTIONS (6)
  - Eye haemorrhage [Recovering/Resolving]
  - Cataract [Recovering/Resolving]
  - Hepatic cirrhosis [Recovering/Resolving]
  - Neuropathy peripheral [Recovering/Resolving]
  - Wrong technique in drug usage process [Unknown]
  - Blindness [Recovering/Resolving]
